FAERS Safety Report 6227548-1 (Version None)
Quarter: 2009Q2

REPORT INFORMATION
  Report Type: 
  Country: None (occurrence: None)
  Receive Date: 20090612
  Receipt Date: 20090601
  Transmission Date: 20091009
  Serious: Yes (Other)
  Sender: FDA-Public Use
  Company Number: JP-PFIZER INC-2009222715

PATIENT
  Age: 35 Year

DRUGS (2)
  1. ZITHROMAX [Suspect]
     Indication: CHLAMYDIA IDENTIFICATION TEST POSITIVE
     Dosage: 1000 MG, 1X/DAY
     Route: 048
     Dates: start: 20090512, end: 20090512
  2. MYLIS [Suspect]
     Dosage: FREQUENCY: EVERY WEEK;
     Route: 067

REACTIONS (1)
  - INTRA-UTERINE DEATH [None]
